APPROVED DRUG PRODUCT: ETODOLAC
Active Ingredient: ETODOLAC
Strength: 500MG
Dosage Form/Route: TABLET, EXTENDED RELEASE;ORAL
Application: A091134 | Product #002 | TE Code: AB
Applicant: ZYDUS PHARMACEUTICALS USA INC
Approved: Jan 23, 2014 | RLD: No | RS: No | Type: RX